FAERS Safety Report 15018765 (Version 1)
Quarter: 2018Q2

REPORT INFORMATION
  Report Type: Spontaneous
  Country: US (occurrence: US)
  Receive Date: 20180616
  Receipt Date: 20180616
  Transmission Date: 20180711
  Serious: No
  Sender: FDA-Public Use
  Company Number: US-JNJFOC-20180600282

PATIENT
  Sex: Male
  Weight: 114.76 kg

DRUGS (4)
  1. INVEGA SUSTENNA [Suspect]
     Active Substance: PALIPERIDONE PALMITATE
     Indication: SCHIZOPHRENIA
     Route: 030
  2. PRILOSEC [Interacting]
     Active Substance: OMEPRAZOLE MAGNESIUM
     Indication: GASTROOESOPHAGEAL REFLUX DISEASE
     Route: 065
  3. INVEGA SUSTENNA [Suspect]
     Active Substance: PALIPERIDONE PALMITATE
     Indication: SCHIZOPHRENIA
     Route: 030
  4. INVEGA SUSTENNA [Suspect]
     Active Substance: PALIPERIDONE PALMITATE
     Indication: SCHIZOPHRENIA
     Route: 030
     Dates: start: 201805

REACTIONS (11)
  - Gastrooesophageal reflux disease [Unknown]
  - Headache [Unknown]
  - Depression [Unknown]
  - Sleep disorder [Unknown]
  - Oropharyngeal pain [Unknown]
  - Drug interaction [Unknown]
  - Disturbance in attention [Unknown]
  - Fatigue [Unknown]
  - Obsessive-compulsive disorder [Unknown]
  - Speech disorder [Unknown]
  - Oral disorder [Unknown]
